FAERS Safety Report 7726610-1 (Version None)
Quarter: 2011Q3

REPORT INFORMATION
  Report Type: 
  Country: None (occurrence: None)
  Receive Date: 20110902
  Receipt Date: 20110822
  Transmission Date: 20111222
  Serious: Yes (Life-Threatening, Other)
  Sender: FDA-Public Use
  Company Number: NO-ELI_LILLY_AND_COMPANY-NO201108007250

PATIENT
  Age: 25 Year
  Sex: Female

DRUGS (4)
  1. VALPROIC ACID [Concomitant]
  2. FLUOXETINE HCL [Suspect]
  3. CIRCADIN [Concomitant]
  4. LAMICTAL [Concomitant]

REACTIONS (1)
  - RESPIRATORY FAILURE [None]
